FAERS Safety Report 6975907-1 (Version None)
Quarter: 2010Q3

REPORT INFORMATION
  Report Type: 
  Country: None (occurrence: None)
  Receive Date: 20100910
  Receipt Date: 20090408
  Transmission Date: 20110219
  Serious: No
  Sender: FDA-Public Use
  Company Number: US-WYE-H08880209

PATIENT
  Sex: Male
  Weight: 95.34 kg

DRUGS (2)
  1. PRISTIQ [Suspect]
     Indication: DEPRESSION
     Route: 048
     Dates: start: 20081001
  2. XANAX [Concomitant]

REACTIONS (6)
  - ANXIETY [None]
  - APATHY [None]
  - BLOOD PRESSURE INCREASED [None]
  - LAZINESS [None]
  - STRABISMUS [None]
  - VISUAL ACUITY REDUCED [None]
